FAERS Safety Report 17948375 (Version 1)
Quarter: 2020Q2

REPORT INFORMATION
  Report Type: Spontaneous
  Country: US (occurrence: US)
  Receive Date: 20200625
  Receipt Date: 20200625
  Transmission Date: 20200714
  Serious: No
  Sender: FDA-Public Use
  Company Number: US-NOVOPROD-721836

PATIENT
  Age: 77 Year
  Sex: Male

DRUGS (4)
  1. OZEMPIC [Suspect]
     Active Substance: SEMAGLUTIDE
     Indication: TYPE 1 DIABETES MELLITUS
     Dosage: 0.5 MG
     Route: 058
     Dates: start: 20200213
  2. NOVOLOG [Concomitant]
     Active Substance: INSULIN ASPART
     Indication: TYPE 1 DIABETES MELLITUS
     Dosage: SLIDING SCALE
     Route: 058
     Dates: start: 2005, end: 20200301
  3. LANTUS [Concomitant]
     Active Substance: INSULIN GLARGINE
     Indication: TYPE 1 DIABETES MELLITUS
     Dosage: 65 IU, QD
     Route: 058
     Dates: start: 2005
  4. LANTUS [Concomitant]
     Active Substance: INSULIN GLARGINE
     Dosage: 32 IU, QD
     Route: 058
     Dates: start: 2005

REACTIONS (4)
  - Nausea [Not Recovered/Not Resolved]
  - Influenza [Recovered/Resolved]
  - Diarrhoea [Not Recovered/Not Resolved]
  - Product use in unapproved indication [Unknown]

NARRATIVE: CASE EVENT DATE: 202002
